FAERS Safety Report 6902705-7 (Version None)
Quarter: 2010Q3

REPORT INFORMATION
  Report Type: 
  Country: None (occurrence: None)
  Receive Date: 20100803
  Receipt Date: 20080716
  Transmission Date: 20110219
  Serious: Yes (Other)
  Sender: FDA-Public Use
  Company Number: US-PFIZER INC-2008048827

PATIENT
  Sex: Female
  Weight: 84.8 kg

DRUGS (8)
  1. LYRICA [Suspect]
     Indication: FIBROMYALGIA
     Route: 048
     Dates: start: 20080602, end: 20080603
  2. LYRICA [Suspect]
     Indication: PAIN
  3. ZOLOFT [Concomitant]
  4. CLONAZEPAM [Concomitant]
  5. PREMARIN [Concomitant]
  6. PROTONIX [Concomitant]
  7. LEVOTHYROXINE [Concomitant]
  8. METHADONE HCL [Concomitant]

REACTIONS (12)
  - CONFUSIONAL STATE [None]
  - DISORIENTATION [None]
  - DIZZINESS [None]
  - DRY MOUTH [None]
  - DYSARTHRIA [None]
  - DYSPNOEA [None]
  - HEADACHE [None]
  - HYPERSENSITIVITY [None]
  - LETHARGY [None]
  - OEDEMA PERIPHERAL [None]
  - SOMNOLENCE [None]
  - SWELLING FACE [None]
